FAERS Safety Report 20884227 (Version 1)
Quarter: 2022Q2

REPORT INFORMATION
  Report Type: Spontaneous
  Country: GR (occurrence: GR)
  Receive Date: 20220527
  Receipt Date: 20220527
  Transmission Date: 20220721
  Serious: Yes (Hospitalization)
  Sender: FDA-Public Use
  Company Number: GR-PFIZER INC-202200647246

PATIENT
  Age: 79 Year
  Sex: Male
  Weight: 85 kg

DRUGS (1)
  1. PAXLOVID [Suspect]
     Active Substance: NIRMATRELVIR\RITONAVIR
     Indication: COVID-19 treatment
     Dosage: 150 MG PF-07321332 + 100 MG RITONAVIR TWICE A DAY
     Route: 048
     Dates: start: 20220427, end: 20220429

REACTIONS (2)
  - Tachycardia [Recovered/Resolved]
  - Blood pressure decreased [Recovered/Resolved]

NARRATIVE: CASE EVENT DATE: 20220428
